FAERS Safety Report 6240358-4 (Version None)
Quarter: 2009Q2

REPORT INFORMATION
  Report Type: 
  Country: None (occurrence: None)
  Receive Date: 20090623
  Receipt Date: 20080820
  Transmission Date: 20091009
  Serious: No
  Sender: FDA-Public Use
  Company Number: US-ASTRAZENECA-2008UW17109

PATIENT
  Age: 10 Year
  Sex: Male

DRUGS (3)
  1. PULMICORT FLEXHALER [Suspect]
     Indication: ASTHMA
     Dosage: 180 MCG, ONE ONE PUFF TWO TIMES A DAY
     Route: 055
  2. MULTI-VITAMIN [Concomitant]
  3. ALBUTEROL [Concomitant]

REACTIONS (1)
  - EPISTAXIS [None]
